FAERS Safety Report 7027191-0 (Version None)
Quarter: 2010Q4

REPORT INFORMATION
  Report Type: 
  Country: None (occurrence: None)
  Receive Date: 20101001
  Receipt Date: 20101001
  Transmission Date: 20110411
  Serious: Yes (Other)
  Sender: FDA-Public Use
  Company Number: None

PATIENT
  Age: 46 Year
  Sex: Male
  Weight: 119.9 kg

DRUGS (1)
  1. HYDROMORPHONE HCL [Suspect]
     Indication: PAIN
     Dosage: 0.5-1 MG Q 2 HR PRN IV
     Route: 042
     Dates: start: 20100923, end: 20100924

REACTIONS (1)
  - PRURITUS [None]
